FAERS Safety Report 10502140 (Version 1)
Quarter: 2014Q4

REPORT INFORMATION
  Report Type: Spontaneous
  Country: US (occurrence: None)
  Receive Date: 20141006
  Receipt Date: 20141006
  Transmission Date: 20150528
  Serious: Yes (Other)
  Sender: FDA-Public Use
  Company Number: None

PATIENT
  Age: 89 Year
  Sex: Male
  Weight: 88.2 kg

DRUGS (8)
  1. FISH OIL [Concomitant]
     Active Substance: FISH OIL
  2. VITAMIN D [Concomitant]
     Active Substance: CHOLECALCIFEROL
  3. LEVOTHYROXIN [Concomitant]
     Active Substance: LEVOTHYROXINE
  4. MULTI VITAMIN [Concomitant]
     Active Substance: VITAMINS
  5. PROCRIT [Concomitant]
     Active Substance: ERYTHROPOIETIN
  6. EXJADE [Suspect]
     Active Substance: DEFERASIROX
     Indication: MYELODYSPLASTIC SYNDROME
     Route: 048
     Dates: start: 20130710, end: 20140930
  7. ASPIRIN. [Concomitant]
     Active Substance: ASPIRIN
  8. WELCHOL [Concomitant]
     Active Substance: COLESEVELAM HYDROCHLORIDE

REACTIONS (1)
  - Drug effect decreased [None]

NARRATIVE: CASE EVENT DATE: 20140930
